FAERS Safety Report 13405334 (Version 1)
Quarter: 2017Q2

REPORT INFORMATION
  Report Type: Spontaneous
  Country: DE (occurrence: DE)
  Receive Date: 20170405
  Receipt Date: 20170405
  Transmission Date: 20170830
  Serious: Yes (Hospitalization)
  Sender: FDA-Public Use
  Company Number: DE-US WORLDMEDS, LLC-USW201703-000494

PATIENT
  Age: 70 Year
  Sex: Male
  Weight: 95 kg

DRUGS (11)
  1. LEVOCOMP RET [Concomitant]
     Indication: PARKINSON^S DISEASE
  2. CARDIODORON [Concomitant]
  3. DACEPTON [Concomitant]
  4. ALIUD NASENSPRAY [Concomitant]
  5. APOMORPHINE HYDROCHLORIDE [Suspect]
     Active Substance: APOMORPHINE HYDROCHLORIDE
     Indication: PARKINSON^S DISEASE
     Route: 058
  6. RIVOTRIL [Concomitant]
     Active Substance: CLONAZEPAM
  7. MADOPAR [Concomitant]
     Active Substance: BENSERAZIDE HYDROCHLORIDE\LEVODOPA
  8. BISOPROLOL [Concomitant]
     Active Substance: BISOPROLOL
  9. MADOPAR [Concomitant]
     Active Substance: BENSERAZIDE HYDROCHLORIDE\LEVODOPA
     Indication: PARKINSON^S DISEASE
  10. PANTOPRAZOLE [Concomitant]
     Active Substance: PANTOPRAZOLE
  11. MULTAQ [Concomitant]
     Active Substance: DRONEDARONE

REACTIONS (4)
  - Arrhythmia [Unknown]
  - Dyspnoea [Unknown]
  - Oral discomfort [Unknown]
  - Teeth brittle [Unknown]

NARRATIVE: CASE EVENT DATE: 20170125
